FAERS Safety Report 8903542 (Version 1)
Quarter: 2012Q4

REPORT INFORMATION
  Report Type: 
  Country: US (occurrence: US)
  Receive Date: 20121113
  Receipt Date: 20121113
  Transmission Date: 20130627
  Serious: Yes (Other)
  Sender: FDA-Public Use
  Company Number: US-WATSON-2012-19210

PATIENT
  Age: 57 Year
  Sex: Male

DRUGS (4)
  1. VERAPAMIL HYDROCHLORIDE [Suspect]
     Indication: PRODUCT USED FOR UNKNOWN INDICATION
     Dosage: UNK, unknown
     Route: 065
  2. DABIGATRAN ETEXILATE [Interacting]
     Indication: PRODUCT USED FOR UNKNOWN INDICATION
     Dosage: 150 mg, bid
     Route: 065
  3. ASPIRIN [Concomitant]
     Indication: PRODUCT USED FOR UNKNOWN INDICATION
     Dosage: 81 mg, daily
     Route: 065
  4. FLECAINIDE [Concomitant]
     Indication: PRODUCT USED FOR UNKNOWN INDICATION
     Dosage: UNK, unknown
     Route: 065

REACTIONS (2)
  - Carpal tunnel syndrome [Recovered/Resolved]
  - Spontaneous haematoma [Recovered/Resolved]
